FAERS Safety Report 6161671-5 (Version None)
Quarter: 2009Q2

REPORT INFORMATION
  Report Type: 
  Country: None (occurrence: None)
  Receive Date: 20090417
  Receipt Date: 20090410
  Transmission Date: 20091009
  Serious: Yes (Death, Other)
  Sender: FDA-Public Use
  Company Number: 2009SP007787

PATIENT
  Age: 52 Year
  Sex: Male
  Weight: 137.4399 kg

DRUGS (9)
  1. LORATADINE [Suspect]
     Indication: RHINITIS ALLERGIC
     Dosage: 10 MG; QD; PO
     Route: 048
     Dates: start: 20081031, end: 20090201
  2. OPANA [Suspect]
     Indication: MYALGIA
     Dosage: 1 DF; Q12H; PO
     Route: 048
     Dates: start: 20090202
  3. FORADIL /00958001/ [Concomitant]
  4. PEG-INTRON [Concomitant]
  5. S-P [Concomitant]
  6. FOLIC ACID [Concomitant]
  7. ACETAMINOPHEN AND HYDROCODONE BITARTRATE [Concomitant]
  8. LISINOPRIL AND HYDROCHLOROTHIAZIDE [Concomitant]
  9. ANDRODERM [Concomitant]

REACTIONS (1)
  - PAIN [None]
